FAERS Safety Report 11987941 (Version 3)
Quarter: 2016Q1

REPORT INFORMATION
  Report Type: Spontaneous
  Country: US (occurrence: US)
  Receive Date: 20160202
  Receipt Date: 20160314
  Transmission Date: 20160526
  Serious: Yes (Life-Threatening, Hospitalization, Congenital Anomaly, Other)
  Sender: FDA-Public Use
  Company Number: PHEH2016US002435

PATIENT
  Sex: Female

DRUGS (2)
  1. SEPTRA [Suspect]
     Active Substance: SULFAMETHOXAZOLE\TRIMETHOPRIM
     Indication: CELLULITIS STAPHYLOCOCCAL
     Route: 065
  2. ZOFRAN [Suspect]
     Active Substance: ONDANSETRON HYDROCHLORIDE
     Indication: FOETAL EXPOSURE DURING PREGNANCY
     Route: 064

REACTIONS (41)
  - Fluid retention [Unknown]
  - Neonatal pneumonia [Unknown]
  - Platelet count decreased [Unknown]
  - Injury [Unknown]
  - Respiratory rate increased [Unknown]
  - Complication associated with device [Unknown]
  - Feeling abnormal [Unknown]
  - Nausea [Unknown]
  - Chest pain [Unknown]
  - Conduction disorder [Unknown]
  - Heart disease congenital [Unknown]
  - Congenital pulmonary valve disorder [Unknown]
  - Cardiac disorder [Unknown]
  - Atelectasis neonatal [Unknown]
  - Emotional distress [Unknown]
  - Sinus node dysfunction [Unknown]
  - Anhedonia [Unknown]
  - Pyrexia [Unknown]
  - Atrial septal defect [Unknown]
  - Heterotaxia [Unknown]
  - Atrioventricular block [Unknown]
  - Neonatal tachypnoea [Unknown]
  - Rash generalised [Unknown]
  - Endocarditis [Unknown]
  - Pulmonary valve stenosis [Unknown]
  - Selective eating disorder [Unknown]
  - Food intolerance [Unknown]
  - Skin lesion [Unknown]
  - Anomalous pulmonary venous connection [Unknown]
  - Diaphragmatic hernia [Unknown]
  - Dyspnoea [Unknown]
  - Congenital anomaly [Unknown]
  - Cardiomegaly [Unknown]
  - Cardiac failure congestive [Unknown]
  - Pain [Unknown]
  - Cellulitis staphylococcal [Unknown]
  - Foetal exposure during pregnancy [Unknown]
  - Anxiety [Unknown]
  - Heart rate decreased [Unknown]
  - Dextrocardia [Unknown]
  - Device related infection [Unknown]

NARRATIVE: CASE EVENT DATE: 20040807
